FAERS Safety Report 5903543-4 (Version None)
Quarter: 2008Q3

REPORT INFORMATION
  Report Type: 
  Country: None (occurrence: None)
  Receive Date: 20080919
  Receipt Date: 20080825
  Transmission Date: 20090109
  Serious: No
  Sender: FDA-Public Use
  Company Number: US-WYE-H05704408

PATIENT
  Age: 75 Year
  Sex: Female
  Weight: 60.84 kg

DRUGS (5)
  1. PRISTIQ [Suspect]
     Dosage: 0.25 TABLET 1X PER 1 DAY ORAL
     Route: 048
     Dates: start: 20080813
  2. NITROGLYCERIN TRANSDERMAL SYSTEM (GLYCERYL TRINITRATE) [Concomitant]
  3. LANOXIN [Concomitant]
  4. ACETYLSALICYLIC ACID SRT [Concomitant]
  5. SYNTHROID [Concomitant]

REACTIONS (6)
  - BURNING SENSATION [None]
  - CONTUSION [None]
  - NEUROPATHY PERIPHERAL [None]
  - PRURITUS [None]
  - TONGUE COATED [None]
  - VULVOVAGINAL MYCOTIC INFECTION [None]
